FAERS Safety Report 5940269-5 (Version None)
Quarter: 2008Q4

REPORT INFORMATION
  Report Type: 
  Country: None (occurrence: None)
  Receive Date: 20081104
  Receipt Date: 20081023
  Transmission Date: 20090506
  Serious: Yes (Hospitalization)
  Sender: FDA-Public Use
  Company Number: US-AVENTIS-200820143GDDC

PATIENT
  Age: 65 Year
  Sex: Male
  Weight: 80.6 kg

DRUGS (5)
  1. DOCETAXEL [Suspect]
     Route: 042
     Dates: start: 20080916, end: 20080930
  2. CODE UNBROKEN [Suspect]
     Dosage: DOSE: 6250 AS TOTAL DOSE ADMINISTERED THIS COURSE
     Route: 048
     Dates: start: 20080916, end: 20081010
  3. DEXAMETHASONE 0.5MG TAB [Concomitant]
     Dosage: DOSE: 4 PRIOR AND POST CHEMO
     Route: 048
  4. HYDROCHLOROTHIAZIDE [Concomitant]
     Route: 048
  5. XELODA [Concomitant]
     Dosage: DOSE: 1000 FOR 14 DAYS OF 21 DAY CYCLE
     Route: 048

REACTIONS (7)
  - BLOOD CREATININE INCREASED [None]
  - COUGH [None]
  - DYSPNOEA [None]
  - HYPONATRAEMIA [None]
  - HYPOXIA [None]
  - LEUKOCYTOSIS [None]
  - PYREXIA [None]
